FAERS Safety Report 24894138 (Version 3)
Quarter: 2025Q1

REPORT INFORMATION
  Report Type: Report from Study
  Country: CA (occurrence: CA)
  Receive Date: 20250128
  Receipt Date: 20250321
  Transmission Date: 20250409
  Serious: Yes (Other)
  Sender: NOVARTIS
  Company Number: CA-002147023-NVSC2025CA001215

PATIENT
  Age: 49 Year
  Sex: Female
  Weight: 68.03 kg

DRUGS (9)
  1. KESIMPTA [Suspect]
     Active Substance: OFATUMUMAB
     Indication: Relapsing-remitting multiple sclerosis
     Dosage: 20 MG, QMO
     Route: 058
     Dates: start: 20220707
  2. KESIMPTA [Suspect]
     Active Substance: OFATUMUMAB
     Indication: Multiple sclerosis
     Dosage: 20 MG, QMO
     Route: 058
     Dates: start: 20230707
  3. KESIMPTA [Suspect]
     Active Substance: OFATUMUMAB
     Dosage: 20 MG, QMO
     Route: 058
     Dates: end: 20241213
  4. NORTRIPTYLINE [Concomitant]
     Active Substance: NORTRIPTYLINE
     Indication: Product used for unknown indication
     Route: 048
     Dates: start: 20231119
  5. MORPHINE [Concomitant]
     Active Substance: MORPHINE
     Indication: Product used for unknown indication
     Dosage: 10 MG, BID
     Route: 065
     Dates: start: 20230926
  6. KADIAN [Concomitant]
     Active Substance: MORPHINE SULFATE
     Indication: Product used for unknown indication
     Dosage: 10 MG, BID
     Route: 065
     Dates: start: 20230926
  7. PREGABALIN [Concomitant]
     Active Substance: PREGABALIN
     Indication: Product used for unknown indication
     Dosage: 125 MG, BID
     Route: 065
     Dates: start: 20230831
  8. PREGABALIN [Concomitant]
     Active Substance: PREGABALIN
     Route: 065
     Dates: start: 20240109
  9. GABAPENTIN [Concomitant]
     Active Substance: GABAPENTIN
     Indication: Product used for unknown indication
     Route: 065
     Dates: start: 20230802

REACTIONS (17)
  - Hypogammaglobulinaemia [Unknown]
  - Immunosuppression [Unknown]
  - Illness [Unknown]
  - Infection [Unknown]
  - Depressed mood [Unknown]
  - Sinusitis [Recovering/Resolving]
  - Vaginal infection [Recovering/Resolving]
  - Decreased immune responsiveness [Unknown]
  - Somnolence [Unknown]
  - Cognitive disorder [Unknown]
  - Dry mouth [Unknown]
  - Ataxia [Unknown]
  - Gastrooesophageal reflux disease [Unknown]
  - Gamma-glutamyltransferase increased [Unknown]
  - Chronic sinusitis [Unknown]
  - Tendonitis [Unknown]
  - Alanine aminotransferase increased [Unknown]

NARRATIVE: CASE EVENT DATE: 20241111
